FAERS Safety Report 5203319-X (Version None)
Quarter: 2006Q4

REPORT INFORMATION
  Report Type: 
  Country: None (occurrence: None)
  Receive Date: 20061016
  Receipt Date: 20060614
  Transmission Date: 20070319
  Serious: Yes (Hospitalization)
  Sender: FDA-Public Use
  Company Number: 2006050868

PATIENT
  Age: 32 Year
  Sex: Female
  Weight: 90.7194 kg

DRUGS (7)
  1. NEURONTIN [Suspect]
     Indication: SCIATIC NERVE INJURY
     Dosage: (400 MG)
     Dates: start: 20050101, end: 20050101
  2. LYRICA [Suspect]
     Indication: SCIATIC NERVE INJURY
     Dosage: 100 MG (50  MG, 2 IN 1 D), ORAL
     Route: 048
     Dates: start: 20060411
  3. CYMBALTA [Suspect]
     Indication: SCIATIC NERVE INJURY
     Dosage: 30 MG (30 MG, 1 IN 1 D), ORAL
     Route: 048
     Dates: start: 20060411
  4. AMBIEN [Suspect]
     Indication: INSOMNIA
     Dosage: (12.5 MG)
     Dates: start: 20060411
  5. ROXICET [Concomitant]
  6. HYDROXYZINE [Concomitant]
  7. OXYCODONE HCL [Concomitant]

REACTIONS (6)
  - BLISTER [None]
  - DIZZINESS [None]
  - FATIGUE [None]
  - HYPERAEMIA [None]
  - MALAISE [None]
  - RASH [None]
